FAERS Safety Report 24941218 (Version 1)
Quarter: 2025Q1

REPORT INFORMATION
  Report Type: Spontaneous
  Country: ES (occurrence: ES)
  Receive Date: 20250207
  Receipt Date: 20250207
  Transmission Date: 20250408
  Serious: Yes (Other)
  Sender: RANBAXY
  Company Number: ES-SUN PHARMACEUTICAL INDUSTRIES LTD-2025R1-492509

PATIENT
  Age: 32 Year
  Sex: Female

DRUGS (3)
  1. RANITIDINE [Suspect]
     Active Substance: RANITIDINE
     Indication: Abdominal pain
     Route: 042
     Dates: start: 202008
  2. RANITIDINE [Suspect]
     Active Substance: RANITIDINE
     Indication: Dyspepsia
  3. EPINEPHRINE [Suspect]
     Active Substance: EPINEPHRINE
     Indication: Myocardial ischaemia
     Route: 030

REACTIONS (3)
  - Stress cardiomyopathy [Unknown]
  - Anaphylactic reaction [Unknown]
  - Kounis syndrome [Unknown]
